FAERS Safety Report 25089135 (Version 1)
Quarter: 2025Q1

REPORT INFORMATION
  Report Type: Spontaneous
  Country: US (occurrence: US)
  Receive Date: 20250318
  Receipt Date: 20250318
  Transmission Date: 20250408
  Serious: Yes (Other)
  Sender: PFIZER
  Company Number: US-PFIZER INC-PV202500032362

PATIENT
  Sex: Female

DRUGS (1)
  1. ZAVZPRET [Suspect]
     Active Substance: ZAVEGEPANT HYDROCHLORIDE
     Route: 045
     Dates: start: 2024

REACTIONS (4)
  - Suicidal ideation [Unknown]
  - Thinking abnormal [Unknown]
  - Vomiting [Unknown]
  - Rash [Unknown]
